FAERS Safety Report 19911830 (Version 1)
Quarter: 2021Q4

REPORT INFORMATION
  Report Type: Report from Study
  Country: TR (occurrence: TR)
  Receive Date: 20211004
  Receipt Date: 20211004
  Transmission Date: 20220303
  Serious: Yes (Life-Threatening, Other)
  Sender: FDA-Public Use
  Company Number: TR-NOVARTISPH-NVSC2021TR223519

PATIENT
  Age: 11 Year
  Sex: Male
  Weight: 31 kg

DRUGS (1)
  1. OMNITROPE [Suspect]
     Active Substance: SOMATROPIN
     Indication: Product used for unknown indication
     Dosage: 1.2 MG
     Route: 058
     Dates: start: 20210728

REACTIONS (4)
  - Suicidal ideation [Unknown]
  - Feelings of worthlessness [Unknown]
  - Negative thoughts [Unknown]
  - Overdose [Unknown]

NARRATIVE: CASE EVENT DATE: 20210925
